FAERS Safety Report 13791800 (Version 1)
Quarter: 2017Q3

REPORT INFORMATION
  Report Type: Spontaneous
  Country: US (occurrence: US)
  Receive Date: 20170725
  Receipt Date: 20170725
  Transmission Date: 20171127
  Serious: No
  Sender: FDA-Public Use
  Company Number: US-ACTELION-A-US2017-157029

PATIENT
  Age: 65 Year
  Sex: Female

DRUGS (3)
  1. ADCIRCA [Concomitant]
     Active Substance: TADALAFIL
  2. AMBRISENTAN [Suspect]
     Active Substance: AMBRISENTAN
     Indication: PRODUCT USED FOR UNKNOWN INDICATION
     Dosage: 10 MG, UNK
     Route: 065
     Dates: start: 20160916
  3. UPTRAVI [Suspect]
     Active Substance: SELEXIPAG
     Indication: PRODUCT USED FOR UNKNOWN INDICATION
     Dosage: 1600 UNK, UNK
     Route: 048

REACTIONS (12)
  - Asthenia [Recovering/Resolving]
  - Malaise [Recovering/Resolving]
  - Diarrhoea [Unknown]
  - Nasopharyngitis [Unknown]
  - Insomnia [Unknown]
  - Pain [Unknown]
  - Drug dose omission [Recovered/Resolved]
  - Flushing [Not Recovered/Not Resolved]
  - Fatigue [Recovering/Resolving]
  - Influenza like illness [Unknown]
  - Sinusitis [Unknown]
  - Headache [Unknown]
